FAERS Safety Report 5013266-4 (Version None)
Quarter: 2006Q2

REPORT INFORMATION
  Report Type: 
  Country: None (occurrence: None)
  Receive Date: 20060530
  Receipt Date: 20060403
  Transmission Date: 20061013
  Serious: No
  Sender: FDA-Public Use
  Company Number: US-GLAXOSMITHKLINE-A0600103A

PATIENT
  Age: 54 Year
  Sex: Female

DRUGS (6)
  1. WELLBUTRIN XL [Suspect]
     Indication: FIBROMYALGIA
     Dosage: 150MG AT NIGHT
     Route: 048
  2. METFORMIN [Suspect]
     Dosage: 500MG TWICE PER DAY
     Dates: start: 20051101
  3. HYZAAR [Concomitant]
  4. PROTONIX [Concomitant]
  5. LEVOXYL [Concomitant]
  6. SINGULAIR [Concomitant]

REACTIONS (7)
  - ARTHRALGIA [None]
  - DEFAECATION URGENCY [None]
  - DIARRHOEA [None]
  - DIFFICULTY IN WALKING [None]
  - DRUG INEFFECTIVE [None]
  - MYALGIA [None]
  - PAIN IN EXTREMITY [None]
